FAERS Safety Report 8284176-4 (Version None)
Quarter: 2012Q2

REPORT INFORMATION
  Report Type: 
  Country: None (occurrence: None)
  Receive Date: 20120413
  Receipt Date: 20110902
  Transmission Date: 20120825
  Serious: No
  Sender: FDA-Public Use
  Company Number: US-ASTRAZENECA-2011SE53461

PATIENT
  Sex: Female

DRUGS (4)
  1. NAPROXEN (ALEVE) [Concomitant]
  2. NEXIUM [Suspect]
     Indication: ACIDOSIS
     Route: 048
  3. PREMPRO [Concomitant]
  4. MULTI-VITAMINS [Concomitant]

REACTIONS (7)
  - KYPHOSCOLIOSIS [None]
  - SWELLING [None]
  - SINUS DISORDER [None]
  - ACCIDENT [None]
  - IRRITABLE BOWEL SYNDROME [None]
  - PAIN [None]
  - DRUG DOSE OMISSION [None]
